FAERS Safety Report 5125878-8 (Version None)
Quarter: 2006Q4

REPORT INFORMATION
  Report Type: 
  Country: None (occurrence: None)
  Receive Date: 20061012
  Receipt Date: 20060619
  Transmission Date: 20070319
  Serious: Yes (Hospitalization)
  Sender: FDA-Public Use
  Company Number: GB-GLAXOSMITHKLINE-B0428877A

PATIENT
  Age: 6 Year
  Sex: Female

DRUGS (5)
  1. FLUTICASONE PROPIONATE [Suspect]
     Indication: ASTHMA
     Dosage: 250MCG FOUR TIMES PER DAY
     Route: 055
  2. ENTOCORT EC [Suspect]
     Indication: ASTHMA
     Dosage: 200MCG FOUR TIMES PER DAY
     Route: 055
  3. SALBUTAMOL [Concomitant]
     Indication: ASTHMA
     Route: 055
  4. SALMETEROL [Concomitant]
     Indication: ASTHMA
     Dosage: 50MCG TWICE PER DAY
     Route: 065
  5. SLOW RELEASE THEOPHYLLINE [Concomitant]
     Indication: ASTHMA
     Dosage: 120MG TWICE PER DAY
     Route: 065

REACTIONS (7)
  - ABDOMINAL PAIN UPPER [None]
  - ADRENOCORTICAL INSUFFICIENCY ACUTE [None]
  - BLOOD CORTISOL DECREASED [None]
  - BODY HEIGHT BELOW NORMAL [None]
  - FATIGUE [None]
  - NAUSEA [None]
  - VOMITING [None]
